FAERS Safety Report 4818503-4 (Version None)
Quarter: 2005Q4

REPORT INFORMATION
  Report Type: 
  Country: None (occurrence: None)
  Receive Date: 20051031
  Receipt Date: 20051031
  Transmission Date: 20060501
  Serious: Yes (Hospitalization)
  Sender: FDA-Public Use
  Company Number: None

PATIENT
  Age: 69 Year
  Sex: Male
  Weight: 80.2867 kg

DRUGS (2)
  1. HEPARIN [Suspect]
     Indication: ANTICOAGULANT THERAPY
  2. ALTEPLASE [Suspect]
     Indication: CATHETER RELATED COMPLICATION
     Dosage: 2 MG /HR

REACTIONS (5)
  - EPISTAXIS [None]
  - HYPOTENSION [None]
  - INCISION SITE HAEMORRHAGE [None]
  - MOUTH HAEMORRHAGE [None]
  - TACHYCARDIA [None]
